FAERS Safety Report 5385886-9 (Version None)
Quarter: 2007Q3

REPORT INFORMATION
  Report Type: 
  Country: None (occurrence: None)
  Receive Date: 20070703
  Receipt Date: 20070429
  Transmission Date: 20080115
  Serious: No
  Sender: FDA-Public Use
  Company Number: 2007PV032870

PATIENT
  Age: 59 Year
  Sex: Female
  Weight: 95.709 kg

DRUGS (14)
  1. SYMLIN [Suspect]
     Indication: TYPE 2 DIABETES MELLITUS
     Dosage: SEE IMAGE
     Route: 058
     Dates: start: 20070401, end: 20070401
  2. SYMLIN [Suspect]
     Indication: TYPE 2 DIABETES MELLITUS
     Dosage: SEE IMAGE
     Route: 058
     Dates: start: 20070401, end: 20070401
  3. SYMLIN [Suspect]
     Indication: TYPE 2 DIABETES MELLITUS
     Dosage: SEE IMAGE
     Route: 058
     Dates: start: 20070401, end: 20070401
  4. SYMLIN [Suspect]
     Indication: TYPE 2 DIABETES MELLITUS
     Dosage: SEE IMAGE
     Route: 058
     Dates: start: 20070401, end: 20070401
  5. SYMLIN [Suspect]
     Indication: TYPE 2 DIABETES MELLITUS
     Dosage: SEE IMAGE
     Route: 058
     Dates: start: 20070417, end: 20070401
  6. SYMLIN [Suspect]
     Indication: TYPE 2 DIABETES MELLITUS
     Dosage: SEE IMAGE
     Route: 058
     Dates: start: 20070425, end: 20070427
  7. SYMLIN [Suspect]
     Indication: TYPE 2 DIABETES MELLITUS
     Dosage: SEE IMAGE
     Route: 058
     Dates: start: 20070427
  8. GLIMEPIRIDE [Concomitant]
  9. METFORMIN HCL [Concomitant]
  10. GLYBURIDE [Concomitant]
  11. LEVEMIR [Concomitant]
  12. ADVAIR DISKUS 100/50 [Concomitant]
  13. THEOPHYLLINE [Concomitant]
  14. SINGULAIR [Concomitant]

REACTIONS (3)
  - ASTHMA [None]
  - DRUG EFFECT DECREASED [None]
  - INJECTION SITE IRRITATION [None]
